FAERS Safety Report 4939433-3 (Version None)
Quarter: 2006Q1

REPORT INFORMATION
  Report Type: 
  Country: None (occurrence: None)
  Receive Date: 20060310
  Receipt Date: 20060227
  Transmission Date: 20060701
  Serious: Yes (Death)
  Sender: FDA-Public Use
  Company Number: IT-BRISTOL-MYERS SQUIBB COMPANY-13297031

PATIENT
  Age: 30 Year
  Sex: Female

DRUGS (4)
  1. BLEOMYCIN [Suspect]
     Indication: HODGKIN'S DISEASE
  2. DOXORUBICIN HCL [Suspect]
     Indication: HODGKIN'S DISEASE
  3. VINBLASTINE [Suspect]
     Indication: HODGKIN'S DISEASE
  4. DACARBAZINE [Suspect]
     Indication: HODGKIN'S DISEASE

REACTIONS (1)
  - MYASTHENIA GRAVIS [None]
